FAERS Safety Report 13687665 (Version 2)
Quarter: 2017Q3

REPORT INFORMATION
  Report Type: Report from Study
  Country: KR (occurrence: KR)
  Receive Date: 20170625
  Receipt Date: 20170707
  Transmission Date: 20171127
  Serious: Yes (Death, Hospitalization, Other)
  Sender: FDA-Public Use
  Company Number: PHHY2014KR178183

PATIENT
  Age: 40 Year
  Sex: Male
  Weight: 70.4 kg

DRUGS (9)
  1. SODIUM BICARBONATE. [Concomitant]
     Active Substance: SODIUM BICARBONATE
     Indication: STOMATITIS
     Dosage: UNK
     Route: 065
     Dates: start: 20141024, end: 20141106
  2. CIPROBAY [Concomitant]
     Active Substance: CIPROFLOXACIN
     Indication: STOMATITIS
     Dosage: UNK
     Route: 065
     Dates: start: 20141104, end: 20141105
  3. TARGIN PR [Concomitant]
     Indication: ABDOMINAL PAIN
     Dosage: UNK
     Route: 065
     Dates: start: 20141017
  4. MATRIFEN [Concomitant]
     Active Substance: FENTANYL
     Indication: ABDOMINAL PAIN
     Dosage: UNK
     Route: 061
     Dates: start: 20140902
  5. KYNEX [Concomitant]
     Active Substance: SULFAMETHOXYPYRIDAZINE
     Indication: DRY EYE
     Dosage: UNK
     Route: 065
     Dates: start: 20141103, end: 20141106
  6. VOTRIENT [Suspect]
     Active Substance: PAZOPANIB HYDROCHLORIDE
     Indication: SARCOMA
     Dosage: 800 MG, QD
     Route: 048
     Dates: start: 20140324, end: 20141023
  7. SYNTHROID [Concomitant]
     Active Substance: LEVOTHYROXINE SODIUM
     Indication: PAPILLARY THYROID CANCER
     Dosage: 50 UG, QD
     Route: 048
     Dates: start: 201301, end: 20141023
  8. TARGIN PR [Concomitant]
     Dosage: UNK, QD
     Route: 048
     Dates: start: 20141021, end: 20141023
  9. TOPAMAX [Concomitant]
     Active Substance: TOPIRAMATE
     Indication: CEREBRAL INFARCTION
     Dosage: 25 MG, BID
     Route: 048
     Dates: end: 20141023

REACTIONS (2)
  - Necrosis [Fatal]
  - Peritonitis [Fatal]

NARRATIVE: CASE EVENT DATE: 20141024
